FAERS Safety Report 7167306-7 (Version None)
Quarter: 2010Q4

REPORT INFORMATION
  Report Type: 
  Country: None (occurrence: None)
  Receive Date: 20101216
  Receipt Date: 20101203
  Transmission Date: 20110411
  Serious: Yes (Other)
  Sender: FDA-Public Use
  Company Number: CA-ELI_LILLY_AND_COMPANY-CA201012000892

PATIENT
  Sex: Female

DRUGS (27)
  1. ZYPREXA [Suspect]
     Indication: SCHIZOPHRENIA, PARANOID TYPE
     Dosage: 10 MG, DAILY (1/D)
     Route: 048
     Dates: start: 19970108
  2. ZYPREXA [Suspect]
     Dosage: 7.5 MG, UNKNOWN
     Route: 048
     Dates: start: 20061011
  3. ZYPREXA [Suspect]
     Dosage: 10 MG, UNKNOWN
     Route: 048
     Dates: start: 20061011
  4. ZYPREXA ZYDIS [Suspect]
     Indication: SCHIZOPHRENIA, PARANOID TYPE
     Dosage: 10 MG, 2/D
     Route: 048
  5. ZYPREXA ZYDIS [Suspect]
     Dosage: 5 MG, DAILY (1/D)
     Route: 048
  6. DEPO-PROVERA [Concomitant]
     Dosage: 150 MG/ML, EVERY THREE MONTHS
     Route: 065
  7. ELTROXIN [Concomitant]
     Dosage: 0.1 MG, UNKNOWN
     Route: 065
  8. APO-FLUVOXAMINE [Concomitant]
     Dosage: 100 MG, UNKNOWN
     Route: 065
  9. RISPERDAL [Concomitant]
     Dosage: 3 MG, UNKNOWN
     Route: 065
  10. VALPROATE SODIUM [Concomitant]
     Dosage: 500 MG, UNKNOWN
     Route: 065
  11. VALPROATE SODIUM [Concomitant]
     Dosage: 250 MG, DAILY (1/D)
     Route: 065
  12. CROMOLYN SODIUM [Concomitant]
     Dosage: 2 %, 2/D
     Route: 065
  13. APO-ERYTHRO-S [Concomitant]
     Dosage: 250 MG, EVERY 6 HRS FOR 7 DAYS
     Route: 065
  14. SOFLAX [Concomitant]
     Dosage: 100 MG, DAILY (1/D)
     Route: 065
  15. BIAXIN [Concomitant]
     Dosage: 250 MG, 2/D
     Route: 065
  16. NOVO-LORAZEM [Concomitant]
     Indication: ANXIETY
     Dosage: 1 MG, DAILY (1/D)
     Route: 065
  17. UREA [Concomitant]
     Dosage: 10 % MENTHOL IN GLAXAL, DAILY
     Route: 065
  18. UREA [Concomitant]
     Dosage: 15 %/NYADAERM CREAM, DAILY
     Route: 065
  19. MACROBID [Concomitant]
     Dosage: 100 MG, DAILY (1/D) FOR SEVEN DAYS
     Route: 065
  20. ANUZINC [Concomitant]
     Dosage: 10 MG, 1 SUPPOSITORY INTO THE RECTUM AS DIRECTED
     Route: 065
  21. SEROQUEL [Concomitant]
     Dosage: 25 MG, DAILY (1/D)
     Route: 065
  22. SEROQUEL [Concomitant]
     Dosage: 100 MG, UNK
  23. PCE [Concomitant]
     Dosage: 333 MG, UNKNOWN
     Route: 065
  24. NOVO-TRIMEL [Concomitant]
     Dosage: 800MG/160MG, DAILY (1/D)
     Route: 065
  25. MONISTAT 3 [Concomitant]
     Dosage: 2%/400MG/KIT, 1 SUPPOSITORY INTO THE VAGINA AT BEDTIME FOR 3 NIGHT
     Route: 065
  26. FLONASE [Concomitant]
     Dosage: 50 UG, INHALE 2 SPRAYS IN EACH NOSTRIL DAILY (1/D)
     Route: 045
  27. ZADITOR [Concomitant]
     Dosage: 0.25 %, 2/D

REACTIONS (6)
  - DEEP VEIN THROMBOSIS [None]
  - DYSLIPIDAEMIA [None]
  - HYPERGLYCAEMIA [None]
  - HYPERTENSION [None]
  - TYPE 1 DIABETES MELLITUS [None]
  - TYPE 2 DIABETES MELLITUS [None]
